FAERS Safety Report 8013036-9 (Version None)
Quarter: 2011Q4

REPORT INFORMATION
  Report Type: 
  Country: None (occurrence: None)
  Receive Date: 20111229
  Receipt Date: 20111227
  Transmission Date: 20120403
  Serious: Yes (Hospitalization)
  Sender: FDA-Public Use
  Company Number: ES-PFIZER INC-2011314423

PATIENT
  Age: 84 Year
  Sex: Female

DRUGS (9)
  1. TRAMADOL [Concomitant]
     Dosage: 25 MG, 2X/DAY
     Route: 048
  2. ALDACTONE [Suspect]
     Dosage: 25 MG, 1X/DAY
     Route: 048
     Dates: start: 20100101, end: 20110816
  3. LORAZEPAM [Concomitant]
     Dosage: 1 MG, 1X/DAY
     Route: 048
  4. FUROSEMIDE [Concomitant]
     Dosage: 80 MG, DAILY
     Route: 048
     Dates: end: 20110816
  5. SINTROM [Concomitant]
     Route: 048
  6. QUINAPRIL HYDROCHLORIDE [Interacting]
     Dosage: 20 MG, 1X/DAY
     Route: 048
     Dates: start: 20090101, end: 20110816
  7. SEROXAT ^SMITH KLINE BEECHAM^ [Concomitant]
     Dosage: 20 MG, 2X/DAY
     Route: 048
  8. OMEPRAZOLE [Concomitant]
     Dosage: 20 MG, 1X/DAY
     Route: 048
  9. DILTIAZEM HCL [Interacting]
     Dosage: 120 MG, 1X/DAY
     Route: 048
     Dates: start: 20110804, end: 20110816

REACTIONS (3)
  - DRUG INTERACTION [None]
  - RENAL FAILURE ACUTE [None]
  - HYPERKALAEMIA [None]
